FAERS Safety Report 6245166-6 (Version None)
Quarter: 2009Q2

REPORT INFORMATION
  Report Type: 
  Country: None (occurrence: None)
  Receive Date: 20090619
  Receipt Date: 20090325
  Transmission Date: 20091009
  Serious: No
  Sender: FDA-Public Use
  Company Number: ALL1-2009-00799

PATIENT
  Age: 39 Year
  Sex: Female
  Weight: 53.5 kg

DRUGS (3)
  1. VYVANSE [Suspect]
     Indication: ATTENTION DEFICIT/HYPERACTIVITY DISORDER
     Dosage: 70 MG, 1X/DAY; QD, ORAL
     Route: 048
     Dates: start: 20080101, end: 20080101
  2. ZYRTEC [Concomitant]
  3. HORMONES NOS [Concomitant]

REACTIONS (3)
  - HEART RATE INCREASED [None]
  - NERVOUSNESS [None]
  - PARANOIA [None]
